FAERS Safety Report 9329065 (Version 1)
Quarter: 2013Q2

REPORT INFORMATION
  Report Type: Spontaneous
  Country: US (occurrence: US)
  Receive Date: 20130604
  Receipt Date: 20130604
  Transmission Date: 20140414
  Serious: Yes (Other)
  Sender: FDA-Public Use
  Company Number: US-GLAXOSMITHKLINE-A1024918A

PATIENT
  Age: 52 Year
  Sex: Female

DRUGS (7)
  1. ADVAIR [Suspect]
     Indication: ASTHMA
     Dosage: 1PUFF TWICE PER DAY
     Route: 055
     Dates: start: 201305
  2. METFORMIN [Concomitant]
  3. LISINOPRIL [Concomitant]
  4. ASPIRIN [Concomitant]
  5. TRAMADOL [Concomitant]
  6. TYLENOL [Concomitant]
  7. ATENOLOL [Concomitant]

REACTIONS (5)
  - Choking [Recovering/Resolving]
  - Pharyngeal disorder [Not Recovered/Not Resolved]
  - Cough [Recovering/Resolving]
  - Vomiting [Recovering/Resolving]
  - Expired drug administered [Recovered/Resolved]
